FAERS Safety Report 19271380 (Version 1)
Quarter: 2021Q2

REPORT INFORMATION
  Report Type: Spontaneous
  Country: US (occurrence: US)
  Receive Date: 20210518
  Receipt Date: 20210518
  Transmission Date: 20210717
  Serious: Yes (Other)
  Sender: FDA-Public Use
  Company Number: US-PURDUE-USA-2020-0224356

PATIENT
  Sex: Male

DRUGS (5)
  1. HYDROCODONE BITARTRATE AND ACETAMINOPHEN [Suspect]
     Active Substance: ACETAMINOPHEN\HYDROCODONE BITARTRATE
     Indication: LIMB INJURY
     Dosage: UNKNOWN
     Route: 048
  2. LORTAB [Suspect]
     Active Substance: ACETAMINOPHEN\HYDROCODONE BITARTRATE
     Indication: LIMB INJURY
     Dosage: UNKNOWN
     Route: 065
  3. DILAUDID [Suspect]
     Active Substance: HYDROMORPHONE HYDROCHLORIDE
     Indication: LIMB INJURY
     Dosage: UNKNOWN
     Route: 048
  4. OXYCODONE/ ACETAMINOPHEN TABLETS [Suspect]
     Active Substance: ACETAMINOPHEN\OXYCODONE HYDROCHLORIDE
     Indication: LIMB INJURY
     Dosage: UNKNOWN
     Route: 048
  5. HEROIN [Suspect]
     Active Substance: DIAMORPHINE
     Indication: LIMB INJURY
     Dosage: UNKNOWN
     Route: 065

REACTIONS (4)
  - Near death experience [Unknown]
  - Drug dependence [Unknown]
  - Seizure [Unknown]
  - Overdose [Unknown]
